FAERS Safety Report 8841976 (Version 1)
Quarter: 2012Q4

REPORT INFORMATION
  Report Type: Spontaneous
  Country: US (occurrence: None)
  Receive Date: 20121015
  Receipt Date: 20121015
  Transmission Date: 20130627
  Serious: Yes (Hospitalization)
  Sender: FDA-Public Use
  Company Number: None

PATIENT
  Age: 43 Year
  Sex: Female
  Weight: 61.69 kg

DRUGS (2)
  1. CYMBALTA 30MG ELI LILLY + CO. [Suspect]
     Indication: CHRONIC BACK PAIN
     Dates: start: 20120912
  2. CYMBALTA 30MG ELI LILLY + CO. [Suspect]
     Indication: DEPRESSION
     Dates: start: 20120912

REACTIONS (9)
  - Hyperhidrosis [None]
  - Middle insomnia [None]
  - Syncope [None]
  - Nausea [None]
  - Palpitations [None]
  - Mydriasis [None]
  - Heart rate increased [None]
  - Hypertension [None]
  - Vomiting [None]
